FAERS Safety Report 8277125-6 (Version None)
Quarter: 2012Q2

REPORT INFORMATION
  Report Type: 
  Country: None (occurrence: None)
  Receive Date: 20120412
  Receipt Date: 20120328
  Transmission Date: 20120825
  Serious: Yes (Other)
  Sender: FDA-Public Use
  Company Number: JP-ROCHE-1054952

PATIENT
  Age: 79 Year
  Sex: Female

DRUGS (18)
  1. PHENOBARBITAL TAB [Suspect]
     Indication: SUICIDE ATTEMPT
     Dosage: DOSAGE IS UNCERTAIN.
     Route: 048
  2. CARBOCISTEINE [Suspect]
     Indication: SUICIDE ATTEMPT
     Dosage: DOSAGE IS UNCERTAIN.
     Route: 048
  3. TRANEXAMIC ACID [Suspect]
     Indication: SUICIDE ATTEMPT
     Dosage: DOSAGE IS UNCERTAIN.
     Route: 048
  4. CLONAZEPAM [Suspect]
     Indication: TRIGEMINAL NEURALGIA
     Route: 048
  5. PREGABALIN [Suspect]
     Indication: SUICIDE ATTEMPT
     Dosage: DOSAGE IS UNCERTAIN.
     Route: 048
  6. KAKKON-TO [Concomitant]
     Indication: TRIGEMINAL NEURALGIA
     Route: 048
  7. ASPIRIN [Concomitant]
     Indication: TRIGEMINAL NEURALGIA
  8. PHENOBARBITAL TAB [Suspect]
     Indication: PRODUCT USED FOR UNKNOWN INDICATION
     Route: 048
  9. ACETAMINOPHEN [Concomitant]
     Indication: TRIGEMINAL NEURALGIA
     Route: 048
  10. BAKUMONDO-TO [Concomitant]
     Indication: TRIGEMINAL NEURALGIA
     Route: 048
  11. PREGABALIN [Suspect]
     Indication: PRODUCT USED FOR UNKNOWN INDICATION
     Dosage: IT INCREASES IT FROM 75MG TO 200MG.
     Route: 048
  12. KETAMINE HCL [Concomitant]
     Indication: TRIGEMINAL NEURALGIA
     Dosage: DOSAGE IS UNCERTAIN.
     Route: 041
  13. RABEPRAZOLE SODIUM [Concomitant]
     Indication: TRIGEMINAL NEURALGIA
     Route: 048
  14. NIFEDIPINE [Concomitant]
     Indication: TRIGEMINAL NEURALGIA
     Route: 048
  15. CLONAZEPAM [Suspect]
     Indication: SUICIDE ATTEMPT
     Route: 048
  16. ACETAMINOPHEN [Concomitant]
     Route: 048
  17. MECOBALAMIN [Concomitant]
     Indication: TRIGEMINAL NEURALGIA
     Route: 048
  18. RIKKUNSHI-TO [Concomitant]
     Indication: TRIGEMINAL NEURALGIA
     Route: 048

REACTIONS (3)
  - LOSS OF CONSCIOUSNESS [None]
  - SUICIDE ATTEMPT [None]
  - DEPRESSION [None]
